FAERS Safety Report 16539150 (Version 3)
Quarter: 2019Q3

REPORT INFORMATION
  Report Type: Spontaneous
  Country: US (occurrence: US)
  Receive Date: 20190708
  Receipt Date: 20190909
  Transmission Date: 20191004
  Serious: Yes (Hospitalization, Other)
  Sender: FDA-Public Use
  Company Number: US-PFIZER INC-2019275689

PATIENT
  Age: 82 Year
  Sex: Male
  Weight: 98.88 kg

DRUGS (2)
  1. VALTREX [Concomitant]
     Active Substance: VALACYCLOVIR HYDROCHLORIDE
     Indication: HERPES ZOSTER
     Dosage: UNK
     Dates: start: 20190406, end: 20190415
  2. XELJANZ [Suspect]
     Active Substance: TOFACITINIB CITRATE
     Indication: COLITIS ULCERATIVE
     Dosage: 10 MG, 2X/DAY(10 MG IN THE MORNING AND IN THE EVENING)
     Route: 048
     Dates: start: 201812

REACTIONS (9)
  - Gait inability [Recovered/Resolved]
  - Post herpetic neuralgia [Not Recovered/Not Resolved]
  - Hyponatraemia [Recovered/Resolved]
  - Encephalopathy [Recovered/Resolved]
  - Scar [Recovered/Resolved]
  - Disease recurrence [Recovered/Resolved]
  - Memory impairment [Recovered/Resolved]
  - Herpes zoster [Recovered/Resolved]
  - Confusional state [Recovered/Resolved]

NARRATIVE: CASE EVENT DATE: 201904
